FAERS Safety Report 5387336-5 (Version None)
Quarter: 2007Q3

REPORT INFORMATION
  Report Type: 
  Country: None (occurrence: None)
  Receive Date: 20070716
  Receipt Date: 20070705
  Transmission Date: 20080115
  Serious: Yes (Hospitalization)
  Sender: FDA-Public Use
  Company Number: PHBS2007BR11369

PATIENT
  Sex: Female

DRUGS (11)
  1. ELIDEL [Suspect]
     Indication: VITILIGO
     Dosage: UNK, QD
     Route: 061
  2. ZELMAC [Concomitant]
     Indication: IRRITABLE BOWEL SYNDROME
     Dosage: 2 TAB/DAY
     Route: 048
  3. ZADITEN [Concomitant]
     Indication: EYE DISORDER
     Dosage: 3 DROPS IN EACH EYE QD
  4. LUFTAL [Concomitant]
     Indication: FLATULENCE
     Dosage: 20 DRPOS/DAY
     Route: 048
  5. CALCIUM CARBONATE [Concomitant]
     Dosage: 2 DF, Q12H
     Route: 048
  6. PANTOPRAZOLE SODIUM [Concomitant]
     Indication: IRRITABLE BOWEL SYNDROME
     Dosage: 1 TAB/DAY
     Route: 048
  7. NIMESULIDE [Concomitant]
     Indication: FIBROMYALGIA
     Dosage: 2 TAB/DAY
     Route: 048
  8. FLUOXETINE [Concomitant]
     Indication: DEPRESSION
     Dosage: 1 TAB/DAY
     Route: 048
  9. MENOPAX [Concomitant]
     Indication: HORMONE REPLACEMENT THERAPY
  10. AESCULUS HIPPOCASTANUM [Concomitant]
     Indication: VARICOSE VEIN
     Dosage: 2 TAB/DAY
     Route: 048
  11. ALCACHOFA EXTO [Concomitant]
     Route: 048

REACTIONS (3)
  - PAIN IN EXTREMITY [None]
  - PERIPHERAL NERVE LESION [None]
  - SURGERY [None]
